FAERS Safety Report 17770266 (Version 2)
Quarter: 2020Q3

REPORT INFORMATION
  Report Type: Spontaneous
  Country: GB (occurrence: GB)
  Receive Date: 20200512
  Receipt Date: 20200729
  Transmission Date: 20201102
  Serious: Yes (Hospitalization)
  Sender: FDA-Public Use
  Company Number: GB-STRIDES ARCOLAB LIMITED-2020SP005577

PATIENT
  Age: 35 Year
  Sex: Female
  Weight: 56 kg

DRUGS (6)
  1. XYLOMETAZOLINE [Concomitant]
     Active Substance: XYLOMETAZOLINE
     Indication: PREMEDICATION
     Dosage: UNK, TWO PUFFS TO EACH NOSTRIL
     Route: 045
  2. LIDOCAINE. [Suspect]
     Active Substance: LIDOCAINE
     Indication: ANAESTHESIA
     Dosage: 4 PERCENT 5ML OF 200 MILLIGRAM, 565 MILLIGRAM TOTAL DOSE
  3. LIDOCAINE. [Suspect]
     Active Substance: LIDOCAINE
     Dosage: 10 PERCENT, 4.L ML OF 40 MG, UNK,  565 MILLIGRAM TOTAL DOSE
     Route: 065
  4. COPHENYLCAINE FORTE [Suspect]
     Active Substance: LIDOCAINE\PHENYLEPHRINE
     Indication: ANAESTHESIA
     Dosage: 2.5 ML OF 12.5 MILLIGRAM
     Route: 045
  5. GLYCOPYRROLATE [GLYCOPYRRONIUM BROMIDE] [Concomitant]
     Active Substance: GLYCOPYRROLATE
     Indication: PREMEDICATION
     Dosage: UNK
     Route: 042
  6. LIDOCAINE. [Suspect]
     Active Substance: LIDOCAINE
     Dosage: 4 PERCENT, 5 ML, OF 120 MG, UNK,  565 MILLIGRAM TOTAL DOSE
     Route: 065

REACTIONS (11)
  - Cough [Recovered/Resolved]
  - Taste disorder [Recovered/Resolved]
  - Vomiting [Recovered/Resolved]
  - Local anaesthetic systemic toxicity [Recovered/Resolved]
  - Dizziness [Recovered/Resolved]
  - Tinnitus [Recovered/Resolved]
  - Overdose [Unknown]
  - Somnolence [Recovered/Resolved]
  - Agitation [Recovered/Resolved]
  - Sinus bradycardia [Recovered/Resolved]
  - Nausea [Recovered/Resolved]
